FAERS Safety Report 9621000 (Version 1)
Quarter: 2013Q4

REPORT INFORMATION
  Report Type: Spontaneous
  Country: US (occurrence: US)
  Receive Date: 20131015
  Receipt Date: 20131015
  Transmission Date: 20140711
  Serious: No
  Sender: FDA-Public Use
  Company Number: US-UPSHER-SMITH LABORATORIES, INC.-13002741

PATIENT
  Sex: Female

DRUGS (1)
  1. BACLOFEN [Suspect]
     Indication: MUSCLE SPASMS
     Dosage: 20 MG, TID
     Route: 048
     Dates: start: 2010

REACTIONS (2)
  - Dyspnoea [Not Recovered/Not Resolved]
  - Feeling cold [Not Recovered/Not Resolved]
